FAERS Safety Report 4514785-7 (Version None)
Quarter: 2004Q4

REPORT INFORMATION
  Report Type: 
  Country: None (occurrence: None)
  Receive Date: 20041124
  Receipt Date: 20041124
  Transmission Date: 20050328
  Serious: Yes (Hospitalization)
  Sender: FDA-Public Use
  Company Number: None

PATIENT
  Age: 1 Day
  Sex: Female
  Weight: 2.0412 kg

DRUGS (1)
  1. AMPICILLIN [Suspect]
     Dates: start: 20041101, end: 20041101

REACTIONS (3)
  - INJECTION SITE DISCOLOURATION [None]
  - NEONATAL DISORDER [None]
  - SKIN DISCOLOURATION [None]
